FAERS Safety Report 8168780-X (Version None)
Quarter: 2012Q1

REPORT INFORMATION
  Report Type: 
  Country: None (occurrence: None)
  Receive Date: 20120227
  Receipt Date: 20120215
  Transmission Date: 20120608
  Serious: Yes (Hospitalization)
  Sender: FDA-Public Use
  Company Number: US-ELI_LILLY_AND_COMPANY-US201202005108

PATIENT
  Sex: Female

DRUGS (11)
  1. RANITIDINE HCL [Concomitant]
  2. GLIPIZIDE [Concomitant]
  3. FERROUS GLUCONATE [Concomitant]
  4. PREDNISONE [Concomitant]
     Dosage: UNK
  5. VITAMIN D [Concomitant]
  6. FORTEO [Suspect]
     Dosage: 20 UG, QD
     Route: 065
     Dates: start: 20120208
  7. FORTEO [Suspect]
     Indication: OSTEOPOROSIS
     Dosage: 20 UG, QD
     Route: 065
     Dates: start: 20110701
  8. MULTI-VITAMINS [Concomitant]
  9. TYLENOL                                 /SCH/ [Concomitant]
     Dosage: UNK, PRN
  10. FORTEO [Suspect]
     Dosage: 20 UG, QD
     Route: 065
     Dates: start: 20120127, end: 20120131
  11. LOSARTAN POTASSIUM [Concomitant]

REACTIONS (1)
  - DIVERTICULITIS [None]
